FAERS Safety Report 18670879 (Version 13)
Quarter: 2024Q4

REPORT INFORMATION
  Report Type: Report from Study
  Country: CA (occurrence: CA)
  Receive Date: 20201228
  Receipt Date: 20241217
  Transmission Date: 20250114
  Serious: Yes (Other)
  Sender: TAKEDA
  Company Number: CA-TAKEDA-2019TUS011835

PATIENT
  Age: 79 Year
  Sex: Female
  Weight: 41 kg

DRUGS (20)
  1. VEDOLIZUMAB [Suspect]
     Active Substance: VEDOLIZUMAB
     Indication: Colitis ulcerative
     Dosage: 300 MILLIGRAM
  2. VEDOLIZUMAB [Suspect]
     Active Substance: VEDOLIZUMAB
     Dosage: 300 MILLIGRAM
  3. VEDOLIZUMAB [Suspect]
     Active Substance: VEDOLIZUMAB
     Dosage: 300 MILLIGRAM, Q4WEEKS
     Dates: start: 20190923
  4. VEDOLIZUMAB [Suspect]
     Active Substance: VEDOLIZUMAB
     Dosage: 300 MILLIGRAM, Q4WEEKS
  5. VEDOLIZUMAB [Suspect]
     Active Substance: VEDOLIZUMAB
     Dosage: 300 MILLIGRAM, Q4WEEKS
  6. VEDOLIZUMAB [Suspect]
     Active Substance: VEDOLIZUMAB
     Dosage: 300 MILLIGRAM, Q4WEEKS
     Dates: start: 20201003
  7. VEDOLIZUMAB [Suspect]
     Active Substance: VEDOLIZUMAB
     Dosage: 300 MILLIGRAM, Q4WEEKS
  8. VEDOLIZUMAB [Suspect]
     Active Substance: VEDOLIZUMAB
     Dosage: 300 MILLIGRAM, Q4WEEKS
  9. VEDOLIZUMAB [Suspect]
     Active Substance: VEDOLIZUMAB
     Dosage: 300 MILLIGRAM, Q4WEEKS
  10. VEDOLIZUMAB [Suspect]
     Active Substance: VEDOLIZUMAB
     Dosage: 300 MILLIGRAM, Q4WEEKS
  11. VEDOLIZUMAB [Suspect]
     Active Substance: VEDOLIZUMAB
     Dosage: 300 MILLIGRAM, Q4WEEKS
  12. VEDOLIZUMAB [Suspect]
     Active Substance: VEDOLIZUMAB
     Dosage: 300 MILLIGRAM, Q4WEEKS
  13. VEDOLIZUMAB [Suspect]
     Active Substance: VEDOLIZUMAB
     Dosage: 300 MILLIGRAM, Q4WEEKS
  14. VEDOLIZUMAB [Suspect]
     Active Substance: VEDOLIZUMAB
     Dosage: 300 MILLIGRAM, Q4WEEKS
  15. VEDOLIZUMAB [Suspect]
     Active Substance: VEDOLIZUMAB
     Dosage: 300 MILLIGRAM, Q4WEEKS
  16. PROLIA [Concomitant]
     Active Substance: DENOSUMAB
     Indication: Osteoporosis
     Dosage: UNK
  17. Salofalk [Concomitant]
     Dosage: UNK UNK, BID
  18. PENTASA [Concomitant]
     Active Substance: MESALAMINE
     Dosage: UNK
  19. ASPIRIN [Concomitant]
     Active Substance: ASPIRIN
     Dosage: UNK UNK, QD
  20. IRON [Concomitant]
     Active Substance: IRON
     Indication: Mineral supplementation
     Dosage: UNK

REACTIONS (28)
  - Colitis ulcerative [Not Recovered/Not Resolved]
  - Pneumonia [Recovering/Resolving]
  - Sneezing [Not Recovered/Not Resolved]
  - Pallor [Unknown]
  - Bedridden [Unknown]
  - Malaise [Not Recovered/Not Resolved]
  - Influenza like illness [Recovering/Resolving]
  - Bowel movement irregularity [Not Recovered/Not Resolved]
  - Mucous stools [Not Recovered/Not Resolved]
  - Jaundice [Unknown]
  - Pain [Unknown]
  - Weight decreased [Unknown]
  - Asthenia [Not Recovered/Not Resolved]
  - Drug ineffective [Unknown]
  - Product dose omission issue [Unknown]
  - Off label use [Unknown]
  - Adverse food reaction [Unknown]
  - Dizziness [Unknown]
  - Rhinorrhoea [Unknown]
  - Abdominal pain [Not Recovered/Not Resolved]
  - Discomfort [Unknown]
  - Constipation [Unknown]
  - Dyspepsia [Not Recovered/Not Resolved]
  - Flatulence [Not Recovered/Not Resolved]
  - Abdominal distension [Not Recovered/Not Resolved]
  - Nasopharyngitis [Unknown]
  - Fatigue [Not Recovered/Not Resolved]
  - Influenza [Unknown]

NARRATIVE: CASE EVENT DATE: 20190515
